FAERS Safety Report 9936283 (Version 1)
Quarter: 2014Q1

REPORT INFORMATION
  Report Type: Spontaneous
  Country: US (occurrence: US)
  Receive Date: 20140228
  Receipt Date: 20140228
  Transmission Date: 20141002
  Serious: No
  Sender: FDA-Public Use
  Company Number: US-AMGEN-USASP2014001873

PATIENT
  Age: 64 Year
  Sex: Female
  Weight: 70.75 kg

DRUGS (9)
  1. ENBREL [Suspect]
     Indication: PRODUCT USED FOR UNKNOWN INDICATION
     Dosage: 50 MG, QWK
     Route: 058
  2. PROTONIX [Concomitant]
     Dosage: 20 MG, UNK
  3. NORVASC [Concomitant]
     Dosage: 10 MG, UNK
  4. LIPITOR [Concomitant]
     Dosage: 10 MG, UNK
  5. TRAMADOL [Concomitant]
     Dosage: 50 MG, UNK
  6. SULFASALAZIN [Concomitant]
     Dosage: 500 MG, UNK
  7. FLAXSEED OIL [Concomitant]
     Dosage: UNK
  8. CALCIUM +D                         /00944201/ [Concomitant]
     Dosage: UNK
  9. ASPIRIN LOW [Concomitant]
     Dosage: 81 MG, UNK

REACTIONS (1)
  - Arthralgia [Unknown]
